FAERS Safety Report 8297963-3 (Version None)
Quarter: 2012Q2

REPORT INFORMATION
  Report Type: 
  Country: None (occurrence: None)
  Receive Date: 20120419
  Receipt Date: 20120417
  Transmission Date: 20120825
  Serious: Yes (Hospitalization, Other)
  Sender: FDA-Public Use
  Company Number: US-PFIZER INC-2012095316

PATIENT
  Sex: Female
  Weight: 43.084 kg

DRUGS (8)
  1. KLONOPIN [Concomitant]
     Indication: MULTIPLE SCLEROSIS
     Dosage: 1 MG, 2X/DAY
  2. KEFLEX [Concomitant]
     Dosage: UNK
  3. CHANTIX [Suspect]
     Indication: SMOKING CESSATION THERAPY
     Dosage: 0.5 MG, 1X/DAY
     Route: 048
     Dates: start: 20120308, end: 20120329
  4. CALCIUM [Concomitant]
     Dosage: 600 MG, 2X/DAY
  5. ATENOLOL [Concomitant]
     Indication: CARDIAC DISORDER
     Dosage: 25 MG, 1X/DAY
  6. GABAPENTIN [Concomitant]
     Indication: MULTIPLE SCLEROSIS
     Dosage: 600 MG, 5X/DAY
  7. OMEPRAZOLE [Concomitant]
     Dosage: 20 MG, 2X/DAY
  8. BACLOFEN [Concomitant]
     Indication: MULTIPLE SCLEROSIS
     Dosage: 10 MG, 4X/DAY

REACTIONS (5)
  - BODY TEMPERATURE INCREASED [None]
  - STREPTOCOCCAL INFECTION [None]
  - STAPHYLOCOCCAL INFECTION [None]
  - POST PROCEDURAL DISCHARGE [None]
  - PAIN IN EXTREMITY [None]
